FAERS Safety Report 4373453-5 (Version None)
Quarter: 2004Q2

REPORT INFORMATION
  Report Type: 
  Country: None (occurrence: None)
  Receive Date: 20040603
  Receipt Date: 20040519
  Transmission Date: 20050107
  Serious: Yes (Hospitalization, Disabling)
  Sender: FDA-Public Use
  Company Number: 2004212325TH

PATIENT
  Age: 47 Year
  Sex: Female
  Weight: 62.5 kg

DRUGS (6)
  1. BEXTRA [Suspect]
     Indication: MYALGIA
     Dosage: SEE IMAGE
     Route: 048
     Dates: start: 20040423, end: 20040502
  2. BEXTRA [Suspect]
     Indication: MYALGIA
     Dosage: SEE IMAGE
     Route: 048
     Dates: start: 20040502, end: 20040502
  3. VIATRIL S [Concomitant]
  4. MYONAL (EPERISONE HYDROCHLORIDE) [Concomitant]
  5. RANITIDINE [Concomitant]
  6. AIR-X (SILICON DIOXIDE, COLLOIDAL) [Concomitant]

REACTIONS (11)
  - ATAXIA [None]
  - BLOOD CHOLESTEROL INCREASED [None]
  - DEAFNESS NEUROSENSORY [None]
  - DIPLOPIA [None]
  - MEDICATION ERROR [None]
  - MYALGIA [None]
  - NEURITIS [None]
  - SPONDYLOSIS [None]
  - SUDDEN HEARING LOSS [None]
  - TINNITUS [None]
  - VERTIGO [None]
